FAERS Safety Report 13088246 (Version 1)
Quarter: 2017Q1

REPORT INFORMATION
  Report Type: Spontaneous
  Country: US (occurrence: US)
  Receive Date: 20170105
  Receipt Date: 20170105
  Transmission Date: 20170428
  Serious: Yes (Death, Hospitalization, Other)
  Sender: FDA-Public Use
  Company Number: US-GLAXOSMITHKLINE-US2016GSK194394

PATIENT
  Age: 15 Year
  Sex: Female

DRUGS (1)
  1. BUPROPION. [Suspect]
     Active Substance: BUPROPION
     Indication: PRODUCT USED FOR UNKNOWN INDICATION
     Route: 048

REACTIONS (11)
  - Completed suicide [Fatal]
  - Agitation [Unknown]
  - Paralysis [Unknown]
  - Brain oedema [Unknown]
  - Tachycardia [Unknown]
  - Hernia [Unknown]
  - Cardio-respiratory arrest [Unknown]
  - Overdose [Unknown]
  - Brain death [Unknown]
  - Hypotension [Unknown]
  - Myoclonus [Unknown]
